FAERS Safety Report 8078645-X (Version None)
Quarter: 2012Q1

REPORT INFORMATION
  Report Type: 
  Country: None (occurrence: None)
  Receive Date: 20120124
  Receipt Date: 20120109
  Transmission Date: 20120608
  Serious: Yes (Hospitalization)
  Sender: FDA-Public Use
  Company Number: 2012MA000625

PATIENT
  Age: 23 Year
  Sex: Female

DRUGS (6)
  1. OLANZAPINE [Concomitant]
  2. METHYLPHENIDATE HYDROCHLORIDE [Suspect]
     Indication: ATTENTION DEFICIT/HYPERACTIVITY DISORDER
     Dosage: 54 MG; PO
     Route: 048
  3. HALOPERIDOL [Concomitant]
  4. LORAZEPAM [Concomitant]
  5. DIPHENHYDRAMINE HCL [Concomitant]
  6. FLUOXETINE ORAL SOLUTION USP [Concomitant]

REACTIONS (9)
  - SUBSTANCE ABUSE [None]
  - NAUSEA [None]
  - AGITATION [None]
  - INTENTIONAL DRUG MISUSE [None]
  - ABNORMAL BEHAVIOUR [None]
  - VISION BLURRED [None]
  - HEADACHE [None]
  - DIPLOPIA [None]
  - DRUG DEPENDENCE [None]
